FAERS Safety Report 7803734-1 (Version None)
Quarter: 2011Q4

REPORT INFORMATION
  Report Type: 
  Country: None (occurrence: None)
  Receive Date: 20111010
  Receipt Date: 20111008
  Transmission Date: 20120403
  Serious: No
  Sender: FDA-Public Use
  Company Number: US-PFIZER INC-2011240472

PATIENT
  Sex: Female
  Weight: 72.56 kg

DRUGS (4)
  1. HERCEPTIN [Concomitant]
     Indication: BREAST CANCER
     Dosage: UNK
  2. CHANTIX [Suspect]
     Indication: SMOKING CESSATION THERAPY
     Dosage: 0.5 MG, 1X/DAY
     Route: 048
     Dates: start: 20110924, end: 20110101
  3. CHANTIX [Suspect]
     Dosage: UNK
     Route: 048
     Dates: start: 20110101
  4. TAMOXIFEN [Concomitant]
     Indication: BREAST CANCER
     Dosage: UNK

REACTIONS (1)
  - VOMITING [None]
